FAERS Safety Report 10640631 (Version 1)
Quarter: 2014Q4

REPORT INFORMATION
  Report Type: Spontaneous
  Country: US (occurrence: US)
  Receive Date: 20141209
  Receipt Date: 20141209
  Transmission Date: 20150529
  Serious: Yes (Other)
  Sender: FDA-Public Use
  Company Number: US-JNJFOC-20141119059

PATIENT

DRUGS (3)
  1. CABAZITAXEL [Interacting]
     Active Substance: CABAZITAXEL
     Indication: NEOPLASM MALIGNANT
     Route: 042
  2. CISPLATIN. [Interacting]
     Active Substance: CISPLATIN
     Indication: NEOPLASM MALIGNANT
     Route: 042
  3. KETOCONAZOLE. [Suspect]
     Active Substance: KETOCONAZOLE
     Indication: PRODUCT USED FOR UNKNOWN INDICATION
     Dosage: 5 DAYS
     Route: 048

REACTIONS (26)
  - Seizure [Unknown]
  - Nausea [Unknown]
  - Lymphopenia [Unknown]
  - Decreased appetite [Unknown]
  - Diarrhoea [Unknown]
  - Blood creatinine increased [Unknown]
  - Blood urea increased [Unknown]
  - Acute hepatic failure [Unknown]
  - Dizziness [Unknown]
  - Pneumonia [Unknown]
  - Dysgeusia [Unknown]
  - Constipation [Unknown]
  - Tinnitus [Unknown]
  - Leukopenia [Unknown]
  - Neutropenia [Unknown]
  - Dyspnoea exertional [Unknown]
  - Hypokalaemia [Unknown]
  - Vomiting [Unknown]
  - Hypomagnesaemia [Unknown]
  - Creatinine renal clearance decreased [Unknown]
  - Pneumothorax [Unknown]
  - Fatigue [Unknown]
  - Atrial fibrillation [Unknown]
  - Cholecystitis acute [Unknown]
  - Drug interaction [Unknown]
  - Dyspepsia [Unknown]
